FAERS Safety Report 11988468 (Version 1)
Quarter: 2016Q1

REPORT INFORMATION
  Report Type: Report from Study
  Country: US (occurrence: US)
  Receive Date: 20160202
  Receipt Date: 20160202
  Transmission Date: 20160526
  Serious: Yes (Hospitalization, Other)
  Sender: FDA-Public Use
  Company Number: US-ABBVIE-16K-163-1549354-00

PATIENT
  Age: 57 Year
  Sex: Female
  Weight: 64.47 kg

DRUGS (6)
  1. HUMIRA [Suspect]
     Active Substance: ADALIMUMAB
     Route: 058
     Dates: start: 201408, end: 201408
  2. HUMIRA [Suspect]
     Active Substance: ADALIMUMAB
     Indication: CROHN^S DISEASE
     Route: 058
     Dates: start: 2010, end: 2010
  3. HUMIRA [Suspect]
     Active Substance: ADALIMUMAB
     Route: 058
     Dates: start: 2010, end: 2010
  4. HUMIRA [Suspect]
     Active Substance: ADALIMUMAB
     Route: 058
     Dates: start: 2014, end: 20160108
  5. HUMIRA [Suspect]
     Active Substance: ADALIMUMAB
     Route: 058
     Dates: start: 2010, end: 2013
  6. HUMIRA [Suspect]
     Active Substance: ADALIMUMAB
     Route: 058
     Dates: start: 201408, end: 201408

REACTIONS (9)
  - Staphylococcal infection [Recovered/Resolved]
  - Crohn^s disease [Not Recovered/Not Resolved]
  - Cholelithiasis [Recovered/Resolved]
  - Enteritis infectious [Recovered/Resolved]
  - Fistula of small intestine [Recovered/Resolved]
  - Large intestinal stenosis [Recovered/Resolved]
  - Back pain [Recovered/Resolved]
  - Intestinal scarring [Recovered/Resolved]
  - Intestinal ulcer [Unknown]

NARRATIVE: CASE EVENT DATE: 2010
